FAERS Safety Report 9975931 (Version 1)
Quarter: 2014Q1

REPORT INFORMATION
  Report Type: Report from Study
  Country: US (occurrence: US)
  Receive Date: 20140306
  Receipt Date: 20140306
  Transmission Date: 20141002
  Serious: Yes (Hospitalization)
  Sender: FDA-Public Use
  Company Number: US-ABBVIE-13P-163-1160597-00

PATIENT
  Sex: Female

DRUGS (13)
  1. HUMIRA [Suspect]
     Indication: CROHN^S DISEASE
     Dosage: LOADING DOSE
     Dates: start: 2009, end: 2009
  2. HUMIRA [Suspect]
     Dosage: SECOND DOSE
     Dates: start: 2009, end: 2009
  3. HUMIRA [Suspect]
     Dates: start: 2009, end: 201011
  4. HUMIRA [Suspect]
     Dosage: LOADING DOSE
     Dates: start: 201102
  5. HUMIRA [Suspect]
     Dosage: SECOND DOSE
     Dates: start: 2011, end: 2011
  6. HUMIRA [Suspect]
     Dates: start: 2011
  7. CALCIUM [Concomitant]
     Indication: MINERAL SUPPLEMENTATION
  8. MAGNESIUM [Concomitant]
     Indication: MINERAL SUPPLEMENTATION
  9. ZINC [Concomitant]
     Indication: VITAMIN SUPPLEMENTATION
  10. POTASSIUM PHOSPHATE [Concomitant]
     Indication: MINERAL SUPPLEMENTATION
  11. XANAX [Concomitant]
     Indication: ANTIDEPRESSANT THERAPY
  12. VITAMIN B12 [Concomitant]
     Indication: VITAMIN SUPPLEMENTATION
  13. ENDOCET [Concomitant]
     Indication: PAIN

REACTIONS (1)
  - Abdominal abscess [Recovering/Resolving]
